FAERS Safety Report 10969802 (Version 3)
Quarter: 2015Q3

REPORT INFORMATION
  Report Type: Report from Study
  Country: IT (occurrence: IT)
  Receive Date: 20150331
  Receipt Date: 20150922
  Transmission Date: 20151125
  Serious: Yes (Death, Hospitalization, Other)
  Sender: FDA-Public Use
  Company Number: IT-ROCHE-1558304

PATIENT
  Age: 82 Year
  Sex: Male

DRUGS (9)
  1. ATROPINE. [Concomitant]
     Active Substance: ATROPINE
  2. SPIRIVA [Concomitant]
     Active Substance: TIOTROPIUM BROMIDE MONOHYDRATE
  3. CARDIOASPIRINA [Concomitant]
     Active Substance: ASPIRIN
  4. ATORVASTATIN [Concomitant]
     Active Substance: ATORVASTATIN
  5. LUCENTIS [Suspect]
     Active Substance: RANIBIZUMAB
     Indication: CHOROIDAL NEOVASCULARISATION
     Route: 050
     Dates: start: 20130311
  6. TAMSULOSIN [Concomitant]
     Active Substance: TAMSULOSIN
  7. LUCENTIS [Suspect]
     Active Substance: RANIBIZUMAB
     Dosage: TENTH INJECTION
     Route: 050
     Dates: start: 20141020
  8. LUCENTIS [Suspect]
     Active Substance: RANIBIZUMAB
     Dosage: ELEVENTH INJECTION
     Route: 050
     Dates: start: 20150126
  9. AZARGA [Concomitant]
     Active Substance: BRINZOLAMIDE\TIMOLOL MALEATE

REACTIONS (5)
  - Ventricular failure [Unknown]
  - Chronic kidney disease [Unknown]
  - Benign prostatic hyperplasia [Unknown]
  - Death [Fatal]
  - Cardiac failure [Unknown]

NARRATIVE: CASE EVENT DATE: 201503
